FAERS Safety Report 5661110-4 (Version None)
Quarter: 2008Q1

REPORT INFORMATION
  Report Type: 
  Country: None (occurrence: None)
  Receive Date: 20080305
  Receipt Date: 20080226
  Transmission Date: 20080703
  Serious: Yes (Other)
  Sender: FDA-Public Use
  Company Number: CHPA2008US03603

PATIENT
  Age: 67 Year
  Sex: Male

DRUGS (7)
  1. EXCEDRIN TENSION HEADACHE(NCH)(ACETAMINOPHEN (PARACETAMOL), CAFFEINE) [Suspect]
     Indication: MYALGIA
     Dosage: 1 DF, TID, ORAL; 2 DF, TID, ORAL
     Route: 048
     Dates: start: 20080222
  2. EXCEDRIN TENSION HEADACHE(NCH)(ACETAMINOPHEN (PARACETAMOL), CAFFEINE) [Suspect]
     Indication: MYALGIA
     Dosage: 1 DF, TID, ORAL; 2 DF, TID, ORAL
     Route: 048
     Dates: start: 20080225
  3. PLAVIX [Concomitant]
  4. CLARITIN [Concomitant]
  5. ASPIRIN [Concomitant]
  6. NIASPAN [Concomitant]
  7. CRESTOR [Concomitant]

REACTIONS (1)
  - BLOOD URINE PRESENT [None]
